FAERS Safety Report 25529518 (Version 1)
Quarter: 2025Q3

REPORT INFORMATION
  Report Type: Spontaneous
  Country: US (occurrence: US)
  Receive Date: 20250708
  Receipt Date: 20250708
  Transmission Date: 20251021
  Serious: No
  Sender: BAYER HEALTHCARE LLC
  Company Number: US-BAYER-2025A089719

PATIENT
  Age: 65 Year
  Sex: Female

DRUGS (1)
  1. MIRALAX [Suspect]
     Active Substance: POLYETHYLENE GLYCOL 3350
     Indication: Endoscopy gastrointestinal
     Route: 048
     Dates: start: 20250701, end: 20250701

REACTIONS (1)
  - Product prescribing issue [None]

NARRATIVE: CASE EVENT DATE: 20250701
